FAERS Safety Report 16824189 (Version 1)
Quarter: 2019Q3

REPORT INFORMATION
  Report Type: Spontaneous
  Country: PL (occurrence: PL)
  Receive Date: 20190918
  Receipt Date: 20190918
  Transmission Date: 20191005
  Serious: Yes (Other)
  Sender: FDA-Public Use
  Company Number: PHHY2019PL216467

PATIENT
  Age: 37 Year
  Sex: Male

DRUGS (6)
  1. PACLITAXEL. [Suspect]
     Active Substance: PACLITAXEL
     Indication: METASTASIS
     Dosage: UNK UNK, CYCLIC
     Route: 065
     Dates: start: 201612
  2. PACLITAXEL. [Suspect]
     Active Substance: PACLITAXEL
     Dosage: UNK, CYCLIC (SECOND LINE CHEMOTHERAPY)
     Route: 065
     Dates: start: 201607
  3. CARBOPLATIN. [Suspect]
     Active Substance: CARBOPLATIN
     Indication: METASTASIS
     Dosage: DEC 2016-MAY 2017, 3 COURSES
     Route: 065
  4. IFOSFAMIDE. [Suspect]
     Active Substance: IFOSFAMIDE
     Indication: METASTASIS
     Dosage: UNK, CYCLIC (SECOND LINE CHEMOTHERAPY)
     Route: 065
     Dates: start: 201607
  5. IFOSFAMIDE. [Suspect]
     Active Substance: IFOSFAMIDE
     Dosage: UNK
     Route: 065
     Dates: start: 201612
  6. CISPLATIN. [Suspect]
     Active Substance: CISPLATIN
     Indication: METASTASIS
     Dosage: UNK UNK, CYCLIC (SECOND LINE CHEMOTHERAPY)
     Route: 065
     Dates: start: 201607

REACTIONS (1)
  - Polyneuropathy [Not Recovered/Not Resolved]
